FAERS Safety Report 7971658-5 (Version None)
Quarter: 2011Q4

REPORT INFORMATION
  Report Type: 
  Country: None (occurrence: None)
  Receive Date: 20111212
  Receipt Date: 20111209
  Transmission Date: 20120403
  Serious: Yes (Death, Life-Threatening, Hospitalization, Other)
  Sender: FDA-Public Use
  Company Number: JP-ABBOTT-11P-087-0877481-00

PATIENT
  Sex: Male

DRUGS (11)
  1. ACETAMINOPHEN [Concomitant]
     Indication: PAIN MANAGEMENT
     Route: 048
     Dates: start: 20090710, end: 20111012
  2. URSODIOL [Concomitant]
     Indication: CHOLELITHIASIS
     Dates: start: 20100524, end: 20111012
  3. HUMIRA [Suspect]
     Dates: end: 20111001
  4. HUMIRA [Suspect]
     Indication: CROHN'S DISEASE
     Route: 058
     Dates: start: 20110920
  5. BROTIZOLAM [Concomitant]
     Indication: INSOMNIA
     Dates: start: 20080915, end: 20111012
  6. LANSOPRAZOLE [Concomitant]
     Indication: GASTROOESOPHAGEAL REFLUX DISEASE
     Route: 048
     Dates: start: 20061208, end: 20111012
  7. HUMIRA [Suspect]
  8. FENTANYL [Concomitant]
     Indication: PAIN MANAGEMENT
     Route: 062
     Dates: start: 20060718, end: 20111012
  9. MORPHINE HYDROCHLORIDE HYDRATE [Concomitant]
     Indication: PAIN MANAGEMENT
     Route: 048
     Dates: start: 20060509, end: 20111012
  10. BERBERINE CHLORIDE HYDRATE/GERANIUM HERB EXTRACT [Concomitant]
     Indication: DIARRHOEA
     Route: 048
     Dates: start: 20050916, end: 20111012
  11. MEXILETINE HYDROCHLORIDE [Concomitant]
     Indication: NERVOUS SYSTEM DISORDER
     Route: 048
     Dates: start: 20091225, end: 20111012

REACTIONS (12)
  - FISTULA DISCHARGE [None]
  - ACTIVITIES OF DAILY LIVING IMPAIRED [None]
  - PLEURAL EFFUSION [None]
  - IMMUNODEFICIENCY [None]
  - RESPIRATORY DISORDER [None]
  - RESPIRATORY ARREST [None]
  - CHOLANGITIS ACUTE [None]
  - GENERAL PHYSICAL HEALTH DETERIORATION [None]
  - FISTULA [None]
  - QUALITY OF LIFE DECREASED [None]
  - HYPOPHAGIA [None]
  - BEDRIDDEN [None]
